FAERS Safety Report 5938289-X (Version None)
Quarter: 2008Q4

REPORT INFORMATION
  Report Type: 
  Country: None (occurrence: None)
  Receive Date: 20081031
  Receipt Date: 20081023
  Transmission Date: 20090506
  Serious: Yes (Other)
  Sender: FDA-Public Use
  Company Number: JP-MERCK-0810USA04651

PATIENT
  Age: 80 Year
  Sex: Female

DRUGS (2)
  1. PEPCID RPD [Suspect]
     Route: 048
     Dates: start: 20050701, end: 20050701
  2. [THERAPY UNSPECIFIED] [Suspect]
     Route: 065

REACTIONS (1)
  - DRUG ERUPTION [None]
